FAERS Safety Report 10083285 (Version 1)
Quarter: 2014Q2

REPORT INFORMATION
  Report Type: Spontaneous
  Country: US (occurrence: None)
  Receive Date: 20140415
  Receipt Date: 20140415
  Transmission Date: 20141212
  Serious: Yes (Other)
  Sender: FDA-Public Use
  Company Number: None

PATIENT
  Age: 25 Year
  Sex: Female
  Weight: 77.11 kg

DRUGS (1)
  1. CLEAN AND CLEAR ACNE WASH 5% [Suspect]

REACTIONS (3)
  - Application site reaction [None]
  - Wrong technique in drug usage process [None]
  - Rash [None]
